FAERS Safety Report 12522320 (Version 4)
Quarter: 2016Q3

REPORT INFORMATION
  Report Type: Spontaneous
  Country: US (occurrence: US)
  Receive Date: 20160701
  Receipt Date: 20160912
  Transmission Date: 20161109
  Serious: Yes (Hospitalization)
  Sender: FDA-Public Use
  Company Number: US-JNJFOC-20160624263

PATIENT
  Age: 82 Year
  Sex: Male
  Weight: 77.11 kg

DRUGS (2)
  1. XARELTO [Suspect]
     Active Substance: RIVAROXABAN
     Indication: DEEP VEIN THROMBOSIS
     Route: 048
     Dates: start: 20160614, end: 20160617
  2. CARVEDILOL. [Concomitant]
     Active Substance: CARVEDILOL
     Indication: ARRHYTHMIA
     Dosage: 25 MG -AM??12.5 MG HS
     Route: 065
     Dates: start: 2014

REACTIONS (1)
  - Renal haemorrhage [Unknown]

NARRATIVE: CASE EVENT DATE: 20160618
